FAERS Safety Report 7295324-7 (Version None)
Quarter: 2011Q1

REPORT INFORMATION
  Report Type: 
  Country: None (occurrence: None)
  Receive Date: 20110211
  Receipt Date: 20110211
  Transmission Date: 20110831
  Serious: Yes (Hospitalization)
  Sender: FDA-Public Use
  Company Number: None

PATIENT

DRUGS (1)
  1. ARAVA [Suspect]
     Indication: RHEUMATOID ARTHRITIS
     Dosage: 1 TABLET DAILY PO
     Route: 048
     Dates: start: 20100101, end: 20101201

REACTIONS (6)
  - DEMENTIA [None]
  - CONFUSIONAL STATE [None]
  - WEIGHT DECREASED [None]
  - CARDIAC MURMUR [None]
  - LUNG ABSCESS [None]
  - RHONCHI [None]
